FAERS Safety Report 8792913 (Version 2)
Quarter: 2015Q1

REPORT INFORMATION
  Report Type: Report from Study
  Country: US (occurrence: US)
  Receive Date: 20120918
  Receipt Date: 20150306
  Transmission Date: 20150721
  Serious: Yes (Death)
  Sender: FDA-Public Use
  Company Number: US-ROCHE-1094864

PATIENT
  Sex: Female

DRUGS (17)
  1. TYLENOL [Concomitant]
     Active Substance: ACETAMINOPHEN
  2. GEMZAR [Concomitant]
     Active Substance: GEMCITABINE HYDROCHLORIDE
     Route: 065
  3. EMEND [Concomitant]
     Active Substance: APREPITANT
  4. ANZEMET [Concomitant]
     Active Substance: DOLASETRON MESYLATE
     Route: 065
  5. AVASTIN [Suspect]
     Active Substance: BEVACIZUMAB
     Indication: MALIGNANT RESPIRATORY TRACT NEOPLASM
     Route: 042
     Dates: start: 20050512
  6. DECADRON [Concomitant]
     Active Substance: DEXAMETHASONE
     Route: 065
  7. LOMOTIL (UNITED STATES) [Concomitant]
  8. ERLOTINIB [Suspect]
     Active Substance: ERLOTINIB
     Indication: MALIGNANT RESPIRATORY TRACT NEOPLASM
     Route: 048
     Dates: start: 200501
  9. GLUCOPHAGE [Suspect]
     Active Substance: METFORMIN HYDROCHLORIDE
     Indication: PRODUCT USED FOR UNKNOWN INDICATION
     Route: 065
  10. ZOFRAN [Concomitant]
     Active Substance: ONDANSETRON HYDROCHLORIDE
  11. IMITREX [Concomitant]
     Active Substance: SUMATRIPTAN\SUMATRIPTAN SUCCINATE
  12. IMODIUM [Concomitant]
     Active Substance: LOPERAMIDE HYDROCHLORIDE
  13. CLARITIN [Concomitant]
     Active Substance: LORATADINE
  14. ERLOTINIB [Suspect]
     Active Substance: ERLOTINIB
     Route: 048
     Dates: start: 200501
  15. PROTONIX (UNITED STATES) [Concomitant]
  16. ALOXI [Concomitant]
     Active Substance: PALONOSETRON HYDROCHLORIDE
     Route: 065
  17. IBUPROFEN. [Concomitant]
     Active Substance: IBUPROFEN

REACTIONS (20)
  - Peripheral swelling [Unknown]
  - Abdominal discomfort [Unknown]
  - Disease progression [Fatal]
  - Oedema [Unknown]
  - Pain in extremity [Unknown]
  - Drug ineffective [Unknown]
  - Nasopharyngitis [Unknown]
  - Diarrhoea [Unknown]
  - Headache [Recovered/Resolved]
  - Dyspepsia [Unknown]
  - Rash [Recovered/Resolved]
  - Off label use [Unknown]
  - Gastrointestinal toxicity [Unknown]
  - Cough [Unknown]
  - Nausea [Unknown]
  - Fatigue [Unknown]
  - Alopecia [Unknown]
  - Leukopenia [Unknown]
  - Sinus congestion [Unknown]
  - Musculoskeletal discomfort [Unknown]
